FAERS Safety Report 21765836 (Version 1)
Quarter: 2022Q4

REPORT INFORMATION
  Report Type: Spontaneous
  Country: IT (occurrence: IT)
  Receive Date: 20221222
  Receipt Date: 20221222
  Transmission Date: 20230112
  Serious: Yes (Death, Hospitalization, Other)
  Sender: FDA-Public Use
  Company Number: IT-AMGEN-ITASP2022207611

PATIENT
  Age: 62 Year
  Sex: Male

DRUGS (14)
  1. OXALIPLATIN [Suspect]
     Active Substance: OXALIPLATIN
     Indication: Colorectal cancer metastatic
     Dosage: UNK
     Route: 065
     Dates: start: 201503
  2. OXALIPLATIN [Suspect]
     Active Substance: OXALIPLATIN
     Dosage: UNK
     Route: 065
     Dates: start: 201508
  3. OXALIPLATIN [Suspect]
     Active Substance: OXALIPLATIN
     Dosage: UNK
     Route: 065
     Dates: start: 201702
  4. FLUOROURACIL [Suspect]
     Active Substance: FLUOROURACIL
     Indication: Colorectal cancer metastatic
     Dosage: UNK
     Route: 065
     Dates: start: 201503
  5. FLUOROURACIL [Suspect]
     Active Substance: FLUOROURACIL
     Dosage: UNK
     Route: 065
     Dates: start: 201508
  6. FLUOROURACIL [Suspect]
     Active Substance: FLUOROURACIL
     Dosage: UNK
     Route: 065
     Dates: start: 201702
  7. LEUCOVORIN [Suspect]
     Active Substance: LEUCOVORIN
     Indication: Colorectal cancer metastatic
     Dosage: UNK
     Route: 065
     Dates: start: 201503
  8. LEUCOVORIN [Suspect]
     Active Substance: LEUCOVORIN
     Dosage: UNK
     Route: 065
     Dates: start: 201508
  9. LEUCOVORIN [Suspect]
     Active Substance: LEUCOVORIN
     Dosage: UNK
     Route: 065
     Dates: start: 201702
  10. PANITUMUMAB [Suspect]
     Active Substance: PANITUMUMAB
     Indication: Colorectal cancer metastatic
     Dosage: UNK
     Route: 065
     Dates: start: 201503
  11. PANITUMUMAB [Suspect]
     Active Substance: PANITUMUMAB
     Dosage: UNK
     Route: 065
     Dates: start: 201808
  12. CETUXIMAB [Concomitant]
     Active Substance: CETUXIMAB
     Indication: Colorectal cancer metastatic
     Dosage: UNK, EVERY WEEK
     Route: 065
     Dates: start: 201907
  13. IRINOTECAN [Concomitant]
     Active Substance: IRINOTECAN
     Indication: Colorectal cancer metastatic
     Dosage: UNK, EVERY WEEK
     Route: 065
     Dates: start: 201907
  14. REGORAFENIB [Concomitant]
     Active Substance: REGORAFENIB
     Indication: Colorectal cancer metastatic
     Dosage: UNK
     Route: 065

REACTIONS (11)
  - Death [Fatal]
  - Thrombocytopenia [Unknown]
  - Colorectal cancer metastatic [Unknown]
  - Metastases to bone [Unknown]
  - Metastases to liver [Unknown]
  - Metastases to the mediastinum [Unknown]
  - Metastases to lymph nodes [Unknown]
  - Gene mutation [Unknown]
  - Drug resistance [Unknown]
  - General physical health deterioration [Unknown]
  - Therapy partial responder [Unknown]

NARRATIVE: CASE EVENT DATE: 20150501
